FAERS Safety Report 14102214 (Version 3)
Quarter: 2017Q4

REPORT INFORMATION
  Report Type: Spontaneous
  Country: CH (occurrence: CH)
  Receive Date: 20171018
  Receipt Date: 20171224
  Transmission Date: 20180321
  Serious: Yes (Death, Other)
  Sender: FDA-Public Use
  Company Number: CH-MYLANLABS-2017M1064159

PATIENT
  Age: 65 Year
  Sex: Female

DRUGS (21)
  1. TRAZODONE [Suspect]
     Active Substance: TRAZODONE HYDROCHLORIDE
     Indication: COMPLETED SUICIDE
     Dosage: UNK
     Route: 033
  2. CITALOPRAM [Suspect]
     Active Substance: CITALOPRAM HYDROBROMIDE
     Indication: COMPLETED SUICIDE
     Dosage: UNK
     Route: 033
  3. DIAZEPAM. [Suspect]
     Active Substance: DIAZEPAM
     Indication: COMPLETED SUICIDE
     Dosage: UNK
     Route: 033
  4. BUTALBITAL [Suspect]
     Active Substance: BUTALBITAL
     Indication: COMPLETED SUICIDE
     Dosage: UNK
     Route: 033
  5. METAMIZOLE [Concomitant]
     Active Substance: METAMIZOLE
     Indication: COMPLETED SUICIDE
     Dosage: UNK
     Route: 033
  6. NORDAZEPAM [Concomitant]
     Active Substance: NORDAZEPAM
     Indication: COMPLETED SUICIDE
     Dosage: UNK
     Route: 033
  7. ZOLPIDEM [Suspect]
     Active Substance: ZOLPIDEM\ZOLPIDEM TARTRATE
     Indication: COMPLETED SUICIDE
     Dosage: UNK
     Route: 048
  8. LOPERAMIDE [Suspect]
     Active Substance: LOPERAMIDE
     Indication: COMPLETED SUICIDE
     Dosage: UNK
     Route: 033
  9. BISOPROLOL [Suspect]
     Active Substance: BISOPROLOL
     Indication: COMPLETED SUICIDE
     Dosage: UNK
     Route: 033
  10. ROHYPNOL [Suspect]
     Active Substance: FLUNITRAZEPAM
     Indication: PRODUCT USED FOR UNKNOWN INDICATION
     Dosage: UNK
     Route: 048
  11. PENTOBARBITAL. [Suspect]
     Active Substance: PENTOBARBITAL
     Indication: COMPLETED SUICIDE
     Dosage: UNK
     Route: 033
  12. TRAMADOL. [Suspect]
     Active Substance: TRAMADOL
     Indication: COMPLETED SUICIDE
     Dosage: UNK
     Route: 033
  13. DEXTROMETHORPHAN [Suspect]
     Active Substance: DEXTROMETHORPHAN
     Indication: COMPLETED SUICIDE
     Dosage: UNK
     Route: 033
  14. DIPYRONE [Suspect]
     Active Substance: DIPYRONE
     Indication: PRODUCT USED FOR UNKNOWN INDICATION
     Route: 065
  15. ZOLPIDEM [Suspect]
     Active Substance: ZOLPIDEM\ZOLPIDEM TARTRATE
     Dosage: UNK
     Route: 033
  16. VALIUM [Suspect]
     Active Substance: DIAZEPAM
     Indication: PRODUCT USED FOR UNKNOWN INDICATION
     Dosage: UNK
     Route: 048
  17. PROPYPHENAZONE [Suspect]
     Active Substance: PROPYPHENAZONE
     Indication: COMPLETED SUICIDE
     Dosage: UNK
     Route: 033
  18. FLUNITRAZEPAM [Concomitant]
     Active Substance: FLUNITRAZEPAM
     Indication: COMPLETED SUICIDE
     Dosage: UNK
     Route: 033
  19. ZOLPIDEM [Suspect]
     Active Substance: ZOLPIDEM\ZOLPIDEM TARTRATE
     Dosage: UNK
     Route: 048
  20. METOCLOPRAMIDE. [Suspect]
     Active Substance: METOCLOPRAMIDE
     Indication: COMPLETED SUICIDE
     Dosage: UNK
     Route: 033
  21. PHENOBARBITAL. [Suspect]
     Active Substance: PHENOBARBITAL
     Indication: PRODUCT USED FOR UNKNOWN INDICATION
     Dosage: 300 MG/ML
     Route: 033

REACTIONS (9)
  - Brain injury [Fatal]
  - Tracheitis [Unknown]
  - Completed suicide [Fatal]
  - Toxicity to various agents [Fatal]
  - Injection site necrosis [Not Recovered/Not Resolved]
  - Peritoneal perforation [Fatal]
  - Intentional overdose [Fatal]
  - Aspiration [Fatal]
  - Pharyngitis [Unknown]
